FAERS Safety Report 9425218 (Version 1)
Quarter: 2013Q3

REPORT INFORMATION
  Report Type: Report from Study
  Country: US (occurrence: US)
  Receive Date: 20130729
  Receipt Date: 20130729
  Transmission Date: 20140515
  Serious: Yes (Hospitalization, Other)
  Sender: FDA-Public Use
  Company Number: PHHO2013US009588

PATIENT
  Age: 58 Year
  Sex: 0
  Weight: 144.7 kg

DRUGS (17)
  1. ACZ885 [Suspect]
     Dosage: 50 MG, UNK
     Route: 058
     Dates: start: 20111207, end: 20130307
  2. AMLODIPINE [Concomitant]
     Indication: HYPERTENSION
     Dosage: 10 MG, QD
     Route: 048
     Dates: start: 20111206
  3. FUROSEMIDE [Concomitant]
     Indication: HYPERTENSION
     Dosage: 20 MG, BID
     Route: 048
     Dates: start: 20111007
  4. LIPITOR [Concomitant]
     Indication: DYSLIPIDAEMIA
     Dosage: 20 MG, QD
     Route: 048
     Dates: start: 20111207
  5. METOPROLOL [Concomitant]
     Indication: HYPERTENSION
     Dosage: 100 MG, QD
     Route: 048
     Dates: start: 20120121
  6. FENOFIBRATE [Concomitant]
     Indication: DYSLIPIDAEMIA
     Dosage: 134 MG, QD
     Route: 048
     Dates: start: 20111107
  7. VITAMIN D [Concomitant]
     Indication: VITAMIN SUPPLEMENTATION
     Dosage: 50000 IU, QW
     Dates: start: 20111107
  8. LISINOPRIL [Concomitant]
     Indication: HYPERTENSION
     Dosage: 40 MG, QD
     Route: 048
     Dates: start: 20120416
  9. HYDRALAZINE [Concomitant]
     Indication: HYPERTENSION
     Dosage: 50 MG, TID
     Route: 048
     Dates: start: 20120430
  10. PLAVIX [Concomitant]
     Indication: PLATELET AGGREGATION
     Dosage: 75 MG, QD
     Route: 048
     Dates: start: 20120105
  11. FISH OIL [Concomitant]
     Indication: DYSLIPIDAEMIA
     Dosage: 1000 MG, TID
     Route: 048
     Dates: start: 20130515
  12. RANEXA [Concomitant]
     Indication: ANGINA PECTORIS
     Dosage: 500 MG, BID
     Route: 048
     Dates: start: 20130215
  13. LANTUS [Concomitant]
     Indication: DIABETES MELLITUS
     Dosage: 30 IU, BID
     Route: 058
     Dates: start: 20130516
  14. HUMALOG [Concomitant]
     Indication: DIABETES MELLITUS
     Dosage: 20 IU, TID
     Route: 058
     Dates: start: 20130516
  15. ISOSORBIDE [Concomitant]
     Indication: HYPERTENSION
     Dosage: 60 MG, QD
     Route: 048
     Dates: start: 20130317
  16. ISOSORBIDE [Concomitant]
     Indication: ANGINA PECTORIS
  17. OMEPRAZOLE [Concomitant]
     Indication: GASTRITIS
     Dosage: 20 MG, QD
     Route: 048
     Dates: start: 20130504

REACTIONS (2)
  - Papillary thyroid cancer [Recovering/Resolving]
  - Postoperative wound infection [Recovered/Resolved]
